FAERS Safety Report 24889589 (Version 1)
Quarter: 2025Q1

REPORT INFORMATION
  Report Type: Spontaneous
  Country: US (occurrence: None)
  Receive Date: 20250127
  Receipt Date: 20250127
  Transmission Date: 20250409
  Serious: No
  Sender: FDA-CTU
  Company Number: None

PATIENT
  Age: 47 Year
  Sex: Female

DRUGS (1)
  1. COSENTYX [Suspect]
     Active Substance: SECUKINUMAB
     Indication: Ankylosing spondylitis
     Dosage: 150 MG/ML EVERY 4 WEEKS SUBCUTANEOUS
     Route: 058
     Dates: start: 20240423

REACTIONS (2)
  - Tympanic membrane perforation [None]
  - Ear infection [None]

NARRATIVE: CASE EVENT DATE: 20250120
